FAERS Safety Report 7955228-0 (Version None)
Quarter: 2011Q4

REPORT INFORMATION
  Report Type: 
  Country: None (occurrence: None)
  Receive Date: 20111202
  Receipt Date: 20111123
  Transmission Date: 20120403
  Serious: Yes (Hospitalization, Other)
  Sender: FDA-Public Use
  Company Number: US-US-EMD SERONO, INC.-230271J10USA

PATIENT
  Sex: Female

DRUGS (1)
  1. REBIF [Suspect]
     Indication: PRODUCT USED FOR UNKNOWN INDICATION
     Route: 058
     Dates: start: 20091021, end: 20110501

REACTIONS (7)
  - SPINAL FRACTURE [None]
  - DECUBITUS ULCER [None]
  - POSTOPERATIVE WOUND COMPLICATION [None]
  - ASTHENIA [None]
  - FALL [None]
  - ANAEMIA [None]
  - CHOLELITHIASIS [None]
